FAERS Safety Report 17846705 (Version 3)
Quarter: 2020Q2

REPORT INFORMATION
  Report Type: Spontaneous
  Country: US (occurrence: US)
  Receive Date: 20200601
  Receipt Date: 20200625
  Transmission Date: 20200714
  Serious: No
  Sender: FDA-Public Use
  Company Number: US-SA-2020SA137236

PATIENT

DRUGS (8)
  1. AUGMENTED BETAMETHASONE DIPROPIONATE [Concomitant]
     Route: 065
  2. RIZATRIPTAN. [Concomitant]
     Active Substance: RIZATRIPTAN
  3. DUPIXENT [Suspect]
     Active Substance: DUPILUMAB
     Indication: DERMATITIS
     Dosage: 200 MG, QOW
     Route: 058
     Dates: start: 20200423
  4. TRIAMCINOLONE [Concomitant]
     Active Substance: TRIAMCINOLONE
     Route: 065
  5. PIMECROLIMUS. [Concomitant]
     Active Substance: PIMECROLIMUS
  6. SELENIUM [Concomitant]
     Active Substance: SELENIUM
     Dosage: UNK
     Route: 065
  7. DOXYCYCLIN [DOXYCYCLINE MONOHYDRATE] [Concomitant]
     Dosage: UNK
     Route: 065
  8. JUNEL FE 1/20 [Concomitant]
     Active Substance: ETHINYL ESTRADIOL\NORETHINDRONE ACETATE
     Route: 065

REACTIONS (4)
  - Eczema [Not Recovered/Not Resolved]
  - Nasal congestion [Not Recovered/Not Resolved]
  - Dermatitis atopic [Recovered/Resolved]
  - Migraine [Not Recovered/Not Resolved]

NARRATIVE: CASE EVENT DATE: 2020
